FAERS Safety Report 7469437-0 (Version None)
Quarter: 2011Q2

REPORT INFORMATION
  Report Type: 
  Country: None (occurrence: None)
  Receive Date: 20110506
  Receipt Date: 20110506
  Transmission Date: 20111010
  Serious: Yes (Hospitalization)
  Sender: FDA-Public Use
  Company Number: None

PATIENT
  Age: 73 Year
  Sex: Male
  Weight: 116 kg

DRUGS (12)
  1. FUROSEMIDE [Concomitant]
  2. NITROGLYCERIN [Concomitant]
  3. PANTOPRAZOLE [Concomitant]
  4. METOPROLOL SUCCINATE [Concomitant]
  5. OMEGA # FATTY ACID [Concomitant]
  6. POTASSIUM CHLORIDE [Concomitant]
  7. WARFARIN SODIUM [Suspect]
     Indication: ATRIAL FIBRILLATION
     Dosage: PER MD ORDER DAILY PO  PRIOR TO ADMISSION
     Route: 048
  8. ALBUTEROL/IPRATROPIUM NEB [Concomitant]
  9. ASPIRIN [Concomitant]
  10. CYANOCOBALAMIN [Concomitant]
  11. METOLAZONE [Concomitant]
  12. SIMVASTATIN [Concomitant]

REACTIONS (2)
  - HAEMORRHOIDAL HAEMORRHAGE [None]
  - INTERNATIONAL NORMALISED RATIO INCREASED [None]
